FAERS Safety Report 7949225-9 (Version None)
Quarter: 2011Q4

REPORT INFORMATION
  Report Type: 
  Country: None (occurrence: None)
  Receive Date: 20111130
  Receipt Date: 20111121
  Transmission Date: 20120403
  Serious: Yes (Hospitalization)
  Sender: FDA-Public Use
  Company Number: DE-MPIJNJ-2011-05961

PATIENT

DRUGS (1)
  1. VELCADE [Suspect]
     Indication: MULTIPLE MYELOMA
     Dosage: 1.96 MG, UNK
     Route: 042
     Dates: start: 20111104, end: 20111111

REACTIONS (2)
  - POSTOPERATIVE WOUND INFECTION [None]
  - RENAL INJURY [None]
